FAERS Safety Report 7099487-8 (Version None)
Quarter: 2010Q4

REPORT INFORMATION
  Report Type: 
  Country: None (occurrence: None)
  Receive Date: 20101112
  Receipt Date: 20101104
  Transmission Date: 20110411
  Serious: Yes (Disabling, Other)
  Sender: FDA-Public Use
  Company Number: US-MERCK-0811USA03805

PATIENT
  Age: 60 Year
  Sex: Female
  Weight: 52 kg

DRUGS (1)
  1. FOSAMAX [Suspect]
     Indication: OSTEOPOROSIS
     Route: 048
     Dates: start: 20001201, end: 20070501

REACTIONS (24)
  - ABASIA [None]
  - ABDOMINAL DISCOMFORT [None]
  - ADVERSE DRUG REACTION [None]
  - ANXIETY [None]
  - BONE DENSITY DECREASED [None]
  - DENTAL CARIES [None]
  - DEPRESSION [None]
  - DIABETES MELLITUS [None]
  - ELECTROCARDIOGRAM ABNORMAL [None]
  - GINGIVAL PAIN [None]
  - IMPLANT SITE INFLAMMATION [None]
  - JAW DISORDER [None]
  - LIMB DEFORMITY [None]
  - MAGNESIUM DEFICIENCY [None]
  - ORAL CAVITY FISTULA [None]
  - OSTEONECROSIS OF JAW [None]
  - PALATAL OEDEMA [None]
  - PANCYTOPENIA [None]
  - SALIVARY GLAND DISORDER [None]
  - SIALOADENITIS [None]
  - SPINAL COMPRESSION FRACTURE [None]
  - TOOTH ABSCESS [None]
  - TOOTH DISORDER [None]
  - TOOTH INFECTION [None]
